FAERS Safety Report 8588247-4 (Version None)
Quarter: 2012Q3

REPORT INFORMATION
  Report Type: 
  Country: None (occurrence: None)
  Receive Date: 20120813
  Receipt Date: 20120803
  Transmission Date: 20120928
  Serious: Yes (Hospitalization)
  Sender: FDA-Public Use
  Company Number: US-BAYER-201023110NA

PATIENT
  Age: 33 Year
  Sex: Female
  Weight: 76 kg

DRUGS (10)
  1. YAZ [Suspect]
     Indication: OVARIAN CYST
     Dates: start: 20090401, end: 20090505
  2. PENICILLIN VK [Concomitant]
     Dosage: 500 MG, UNK
     Dates: start: 20090408
  3. TYLENOL [Concomitant]
     Dosage: UNK UNK, PRN
  4. DIET ASIA PILLS [Concomitant]
     Dosage: 2 DAYS PRIOR TO HOSPITALIZATION
  5. SANCTURA [Concomitant]
     Dosage: 10 MG, QD
     Dates: start: 20090330
  6. ADVIL [Concomitant]
  7. YAZ [Suspect]
     Indication: AMENORRHOEA
  8. ADVIL PM [Concomitant]
  9. NABUMETONE [Concomitant]
     Dosage: 500 MG, UNK
     Dates: start: 20090312
  10. FLAGYL [Concomitant]
     Dosage: 500 MG, UNK
     Dates: start: 20090330

REACTIONS (4)
  - PULMONARY EMBOLISM [None]
  - DYSPNOEA [None]
  - HEART RATE INCREASED [None]
  - DEEP VEIN THROMBOSIS [None]
